FAERS Safety Report 16160866 (Version 1)
Quarter: 2019Q2

REPORT INFORMATION
  Report Type: Spontaneous
  Country: US (occurrence: US)
  Receive Date: 20190405
  Receipt Date: 20190405
  Transmission Date: 20190711
  Serious: No
  Sender: FDA-Public Use
  Company Number: US-AMGEN-USASP2019048446

PATIENT
  Age: 22 Year
  Sex: Female

DRUGS (2)
  1. CALCIUM/VITAMIN D [CALCIUM;ERGOCALCIFEROL] [Concomitant]
     Dosage: UNK
  2. CINACALCET HCL [Suspect]
     Active Substance: CINACALCET HYDROCHLORIDE
     Indication: PRODUCT USED FOR UNKNOWN INDICATION
     Dosage: 90 MILLIGRAM, QD
     Route: 065

REACTIONS (5)
  - Calcinosis [Unknown]
  - Vascular calcification [Unknown]
  - Therapy non-responder [Unknown]
  - Bone density decreased [Unknown]
  - Tendonitis [Unknown]
